FAERS Safety Report 10983585 (Version 2)
Quarter: 2015Q2

REPORT INFORMATION
  Report Type: Report from Study
  Country: CA (occurrence: CA)
  Receive Date: 20150403
  Receipt Date: 20150421
  Transmission Date: 20150821
  Serious: Yes (Hospitalization, Other)
  Sender: FDA-Public Use
  Company Number: CA-ABBVIE-15K-028-1367993-00

PATIENT
  Age: 62 Year
  Sex: Female
  Weight: 62 kg

DRUGS (2)
  1. HUMIRA [Suspect]
     Active Substance: ADALIMUMAB
     Indication: CROHN^S DISEASE
     Route: 058
     Dates: start: 201401
  2. PEN V [Suspect]
     Active Substance: PENICILLIN V
     Indication: BRONCHITIS
     Route: 065
     Dates: start: 201503

REACTIONS (8)
  - Small intestinal obstruction [Unknown]
  - Loss of consciousness [Recovered/Resolved]
  - Vaginal infection [Recovered/Resolved]
  - Urinary tract infection [Not Recovered/Not Resolved]
  - Bronchitis [Unknown]
  - Infection [Not Recovered/Not Resolved]
  - Chest X-ray abnormal [Not Recovered/Not Resolved]
  - Keratitis [Recovered/Resolved]

NARRATIVE: CASE EVENT DATE: 2014
